FAERS Safety Report 10043463 (Version 1)
Quarter: 2014Q1

REPORT INFORMATION
  Report Type: Spontaneous
  Country: US (occurrence: US)
  Receive Date: 20140328
  Receipt Date: 20140328
  Transmission Date: 20141002
  Serious: No
  Sender: FDA-Public Use
  Company Number: US-PFIZER INC-2014086343

PATIENT
  Age: 56 Year
  Sex: Female
  Weight: 81.63 kg

DRUGS (4)
  1. LYRICA [Suspect]
     Indication: PAIN
     Dosage: 100 MG, UNK
  2. LYRICA [Suspect]
     Indication: NEUROPATHY PERIPHERAL
     Dosage: 50 MG, 4X/DAY
  3. LYRICA [Suspect]
     Dosage: 50 MG, 3X/DAY
     Dates: start: 2014
  4. PRAMIPEXOLE [Concomitant]
     Indication: PAIN IN EXTREMITY
     Dosage: 1 TABLET OF 0.25 MG AT DINNER TIME AND 2 TABLETS OF 0.25 MG AT BED TIME

REACTIONS (3)
  - Somnolence [Unknown]
  - Lethargy [Unknown]
  - Drug effect incomplete [Unknown]
